FAERS Safety Report 7533445-1 (Version None)
Quarter: 2011Q2

REPORT INFORMATION
  Report Type: 
  Country: None (occurrence: None)
  Receive Date: 20110608
  Receipt Date: 20090216
  Transmission Date: 20111010
  Serious: Yes (Hospitalization, Other)
  Sender: FDA-Public Use
  Company Number: US-BAYER-200913055NA

PATIENT
  Age: 45 Year
  Sex: Male
  Weight: 78 kg

DRUGS (11)
  1. PROTAMINE SULFATE [Concomitant]
     Dosage: UNK
     Route: 042
     Dates: start: 20040109, end: 20040109
  2. TRASYLOL [Suspect]
     Indication: AORTIC SURGERY
  3. CATAPRES [Concomitant]
     Dosage: 0.2 MG, QD
     Route: 048
  4. NORVASC [Concomitant]
     Dosage: 20 MG, QD
     Route: 048
  5. TOPROL-XL [Concomitant]
     Dosage: 100 MG, QD
     Route: 048
  6. MINOXIDIL [Concomitant]
     Dosage: 5 MG, BID
     Route: 048
  7. NIFEREX [Concomitant]
     Dosage: 1 DAILY
     Route: 048
  8. HEPARIN [Concomitant]
     Dosage: 5,000 UNITS
     Route: 042
     Dates: start: 20040109, end: 20040109
  9. TRASYLOL [Suspect]
     Indication: CARDIAC OPERATION
     Dosage: 200ML X3
     Route: 042
     Dates: start: 20040109, end: 20040109
  10. ANCEF [Concomitant]
     Dosage: 1 GRAM
     Route: 042
     Dates: start: 20040109, end: 20040109
  11. LASIX [Concomitant]
     Dosage: 40 MG, BID
     Route: 048

REACTIONS (8)
  - UNEVALUABLE EVENT [None]
  - ANHEDONIA [None]
  - RENAL FAILURE [None]
  - INJURY [None]
  - PAIN [None]
  - ANXIETY [None]
  - FEAR [None]
  - DEPRESSION [None]
